FAERS Safety Report 17650511 (Version 1)
Quarter: 2020Q2

REPORT INFORMATION
  Report Type: Spontaneous
  Country: US (occurrence: US)
  Receive Date: 20200408
  Receipt Date: 20200408
  Transmission Date: 20200713
  Serious: Yes (Hospitalization)
  Sender: FDA-Public Use
  Company Number: None

PATIENT
  Sex: Male

DRUGS (7)
  1. PEPCID AC [Concomitant]
     Active Substance: FAMOTIDINE
  2. BACTRIM [Concomitant]
     Active Substance: SULFAMETHOXAZOLE\TRIMETHOPRIM
  3. ZOFRAN [Concomitant]
     Active Substance: ONDANSETRON HYDROCHLORIDE
  4. ZARXIO [Suspect]
     Active Substance: FILGRASTIM-SNDZ
     Indication: MALIGNANT CONNECTIVE TISSUE NEOPLASM
     Dosage: ?          OTHER DOSE:300MCG (1 SYR);OTHER ROUTE:SQ 10 D EVERY 12 D CYCLE?
     Dates: start: 20200214
  5. SUCRALFATE. [Concomitant]
     Active Substance: SUCRALFATE
  6. CLARITIN [Concomitant]
     Active Substance: LORATADINE
  7. ZARXIO [Suspect]
     Active Substance: FILGRASTIM-SNDZ
     Indication: SOFT TISSUE SARCOMA
     Dosage: ?          OTHER DOSE:300MCG (1 SYR);OTHER ROUTE:SQ 10 D EVERY 12 D CYCLE?
     Dates: start: 20200214

REACTIONS (1)
  - Febrile neutropenia [None]
